FAERS Safety Report 7744626-6 (Version None)
Quarter: 2011Q3

REPORT INFORMATION
  Report Type: 
  Country: None (occurrence: None)
  Receive Date: 20110912
  Receipt Date: 20110909
  Transmission Date: 20111222
  Serious: Yes (Other)
  Sender: FDA-Public Use
  Company Number: US-PFIZER INC-2011212870

PATIENT
  Sex: Male
  Weight: 109 kg

DRUGS (2)
  1. ALPRAZOLAM [Suspect]
     Indication: ANXIETY
     Dosage: 2 MG, 2X/DAY
     Route: 048
     Dates: start: 20110501
  2. AMPHETAMINE SULFATE [Concomitant]
     Dosage: UNK

REACTIONS (4)
  - ABNORMAL BEHAVIOUR [None]
  - DRUG INEFFECTIVE [None]
  - AGITATION [None]
  - FEELING ABNORMAL [None]
